FAERS Safety Report 18793018 (Version 2)
Quarter: 2021Q1

REPORT INFORMATION
  Report Type: Other
  Country: US (occurrence: US)
  Receive Date: 20210127
  Receipt Date: 20210225
  Transmission Date: 20210419
  Serious: Yes (Other)
  Sender: FDA-Public Use
  Company Number: US-INTERCEPT-PM2021000094

PATIENT
  Sex: Female

DRUGS (8)
  1. OCALIVA [Suspect]
     Active Substance: OBETICHOLIC ACID
     Dosage: 5 MILLIGRAM, QD
     Route: 048
  2. MULTI?VITAMINS VITAFIT [Concomitant]
     Active Substance: VITAMINS
  3. ATORVASTATIN CALCIUM. [Concomitant]
     Active Substance: ATORVASTATIN CALCIUM
  4. LUTEIN + [Concomitant]
  5. PRAMIPEXOLE. [Concomitant]
     Active Substance: PRAMIPEXOLE
  6. URSODIOL. [Concomitant]
     Active Substance: URSODIOL
  7. OCALIVA [Suspect]
     Active Substance: OBETICHOLIC ACID
     Dosage: 5 MILLIGRAM, QD
     Route: 048
     Dates: start: 20190906, end: 201911
  8. ASPIRIN (E.C.) [Concomitant]
     Active Substance: ASPIRIN

REACTIONS (4)
  - Memory impairment [Unknown]
  - Therapy interrupted [Unknown]
  - Cerebrovascular accident [Unknown]
  - Product distribution issue [Unknown]
